FAERS Safety Report 4363669-6 (Version None)
Quarter: 2004Q2

REPORT INFORMATION
  Report Type: 
  Country: None (occurrence: None)
  Receive Date: 20040524
  Receipt Date: 20040524
  Transmission Date: 20050107
  Serious: Yes (Hospitalization)
  Sender: FDA-Public Use
  Company Number: None

PATIENT
  Sex: Male
  Weight: 115.6672 kg

DRUGS (19)
  1. EPTIFIBATIDE [Suspect]
     Indication: CATHETERISATION CARDIAC
     Dosage: 20 ML/HR INFUSION INTRAVENOUS
     Route: 042
     Dates: start: 20040112, end: 20040112
  2. ENOXAPARIN SODIUM [Suspect]
     Indication: CATHETERISATION CARDIAC
     Dosage: 120 MG BID SUBCUTANEOUS
     Route: 058
     Dates: start: 20040112, end: 20040112
  3. ISOSORBIDE DINITRATE [Concomitant]
  4. TRAZODONE HCL [Concomitant]
  5. METOPROLOL [Concomitant]
  6. GLIPIZIDE [Concomitant]
  7. GABAPENTIN [Concomitant]
  8. FUROSEMIDE [Concomitant]
  9. ADVAIR DISKUS 100/50 [Concomitant]
  10. ENALAPRIL MALEATE [Concomitant]
  11. DOCUSATE SODIUM [Concomitant]
  12. CLOPIDOGREL BISULFATE [Concomitant]
  13. CITALOPRAM TAB [Concomitant]
  14. ASPIRIN [Concomitant]
  15. NITROGLYCERIN [Concomitant]
  16. HEPARIN [Concomitant]
  17. FELODIPINE [Concomitant]
  18. SIMVASTATIN [Concomitant]
  19. INSULINE LISPRO [Concomitant]

REACTIONS (3)
  - EAR HAEMORRHAGE [None]
  - HAEMATURIA [None]
  - MOUTH HAEMORRHAGE [None]
